FAERS Safety Report 10095888 (Version 3)
Quarter: 2015Q3

REPORT INFORMATION
  Report Type: Spontaneous
  Country: US (occurrence: US)
  Receive Date: 20140422
  Receipt Date: 20150814
  Transmission Date: 20151125
  Serious: No
  Sender: FDA-Public Use
  Company Number: US-GILEAD-2013-0076978

PATIENT
  Age: 65 Year
  Sex: Male

DRUGS (1)
  1. LETAIRIS [Suspect]
     Active Substance: AMBRISENTAN
     Indication: PULMONARY ARTERIAL HYPERTENSION
     Dosage: 5 MG, QD
     Dates: start: 20130207, end: 20130607

REACTIONS (6)
  - Dyspnoea [Unknown]
  - Abdominal pain upper [Unknown]
  - Increased viscosity of bronchial secretion [Unknown]
  - Vomiting [Unknown]
  - Sinus congestion [Unknown]
  - Nausea [Unknown]

NARRATIVE: CASE EVENT DATE: 201305
